FAERS Safety Report 24772837 (Version 2)
Quarter: 2024Q4

REPORT INFORMATION
  Report Type: Report from Study
  Country: IN (occurrence: IN)
  Receive Date: 20241225
  Receipt Date: 20241231
  Transmission Date: 20250115
  Serious: Yes (Other)
  Sender: ROCHE
  Company Number: IN-ROCHE-10000160132

PATIENT
  Age: 69 Year
  Sex: Female
  Weight: 61.6 kg

DRUGS (1)
  1. PHESGO [Suspect]
     Active Substance: HYALURONIDASE-ZZXF\PERTUZUMAB\TRASTUZUMAB
     Indication: Breast cancer
     Route: 058
     Dates: start: 20230227

REACTIONS (9)
  - Hypotension [Unknown]
  - Haemoglobin decreased [Unknown]
  - Metastases to central nervous system [Unknown]
  - Central nervous system lesion [Unknown]
  - Scan abnormal [Unknown]
  - Vasogenic cerebral oedema [Unknown]
  - Cerebral small vessel ischaemic disease [Unknown]
  - Metastases to central nervous system [Unknown]
  - Cerebral mass effect [Unknown]

NARRATIVE: CASE EVENT DATE: 20241104
